FAERS Safety Report 9111058 (Version 1)
Quarter: 2013Q1

REPORT INFORMATION
  Report Type: Spontaneous
  Country: US (occurrence: US)
  Receive Date: 20130219
  Receipt Date: 20130219
  Transmission Date: 20140127
  Serious: No
  Sender: FDA-Public Use
  Company Number: US-BRISTOL-MYERS SQUIBB COMPANY-16977852

PATIENT
  Age: 46 Year
  Sex: Female
  Weight: 80.72 kg

DRUGS (1)
  1. ORENCIA [Suspect]
     Indication: RHEUMATOID ARTHRITIS
     Dosage: SINCE JUNE, INF:3, LAST INF: 12SEP2012
     Route: 042

REACTIONS (9)
  - Pain [Unknown]
  - Nausea [Unknown]
  - Vomiting [Unknown]
  - Fatigue [Unknown]
  - Skin mass [Unknown]
  - Depression [Unknown]
  - Bursitis [Unknown]
  - Diarrhoea [Unknown]
  - Weight decreased [Unknown]
